FAERS Safety Report 7611985-4 (Version None)
Quarter: 2011Q3

REPORT INFORMATION
  Report Type: 
  Country: None (occurrence: None)
  Receive Date: 20110715
  Receipt Date: 20110707
  Transmission Date: 20111222
  Serious: Yes (Other)
  Sender: FDA-Public Use
  Company Number: US-JNJFOC-20110705118

PATIENT
  Sex: Female

DRUGS (4)
  1. TRICYCLIC ANTIDEPRESSANTS [Concomitant]
     Route: 065
  2. ITRACONAZOLE [Suspect]
     Indication: CANDIDIASIS
     Route: 065
     Dates: start: 20030324
  3. AMPHETAMINES [Concomitant]
     Route: 065
  4. IMITREX [Concomitant]
     Route: 065

REACTIONS (2)
  - RESPIRATORY DISTRESS [None]
  - RASH PRURITIC [None]
